FAERS Safety Report 9663605 (Version 1)
Quarter: 2013Q4

REPORT INFORMATION
  Report Type: Spontaneous
  Country: US (occurrence: US)
  Receive Date: 20131101
  Receipt Date: 20131101
  Transmission Date: 20140711
  Serious: No
  Sender: FDA-Public Use
  Company Number: US-ENDO PHARMACEUTICALS INC.-CLOZ20120019

PATIENT
  Sex: Female

DRUGS (2)
  1. CLONAZEPAM 1MG. ACCORD H [Suspect]
     Indication: INSOMNIA
     Dosage: 1 MG
     Route: 060
     Dates: start: 2012, end: 2012
  2. CLONAZEPAM 1MG. ACCORD H [Suspect]
     Route: 060
     Dates: start: 2012

REACTIONS (2)
  - Dysgeusia [Not Recovered/Not Resolved]
  - Drug ineffective [Not Recovered/Not Resolved]
